FAERS Safety Report 8584945-7 (Version None)
Quarter: 2012Q3

REPORT INFORMATION
  Report Type: 
  Country: None (occurrence: None)
  Receive Date: 20120810
  Receipt Date: 20120806
  Transmission Date: 20120928
  Serious: Yes (Death)
  Sender: FDA-Public Use
  Company Number: NG-PFIZER INC-2012191468

PATIENT
  Age: 31 Year
  Sex: Female

DRUGS (1)
  1. VFEND [Suspect]

REACTIONS (1)
  - DEATH [None]
